FAERS Safety Report 6735097-7 (Version None)
Quarter: 2010Q2

REPORT INFORMATION
  Report Type: 
  Country: None (occurrence: None)
  Receive Date: 20100521
  Receipt Date: 20100506
  Transmission Date: 20101027
  Serious: Yes (Other)
  Sender: FDA-Public Use
  Company Number: NL-MYLANLABS-2010S1008003

PATIENT
  Age: 66 Year
  Sex: Male

DRUGS (4)
  1. PAROXETINE HCL [Suspect]
     Indication: MAJOR DEPRESSION
     Dates: start: 20100304
  2. PAROXETINE HCL [Suspect]
     Dates: start: 20100304
  3. PROMETHAZINE [Suspect]
     Indication: INSOMNIA
     Dates: start: 20100222
  4. HALDOL [Suspect]
     Indication: DELUSION
     Route: 030
     Dates: start: 20100222, end: 20100304

REACTIONS (1)
  - IMPULSE-CONTROL DISORDER [None]
